FAERS Safety Report 8378351-8 (Version None)
Quarter: 2012Q2

REPORT INFORMATION
  Report Type: 
  Country: None (occurrence: None)
  Receive Date: 20120522
  Receipt Date: 20120514
  Transmission Date: 20120825
  Serious: Yes (Hospitalization, Other)
  Sender: FDA-Public Use
  Company Number: US-ELI_LILLY_AND_COMPANY-US201205005639

PATIENT
  Age: 58 Year
  Sex: Male

DRUGS (4)
  1. HUMALOG [Suspect]
     Dosage: UNK, PRN
     Dates: start: 20070101
  2. HUMALOG [Suspect]
     Indication: DIABETES MELLITUS
     Dosage: UNK, PRN
  3. RIBAVIRIN [Concomitant]
     Indication: CHOLELITHIASIS
     Route: 048
  4. INTERFERON [Concomitant]
     Indication: CHOLELITHIASIS
     Dosage: UNK, WEEKLY (1/W)

REACTIONS (10)
  - MALAISE [None]
  - MEMORY IMPAIRMENT [None]
  - HEPATITIS C [None]
  - CEREBROVASCULAR ACCIDENT [None]
  - ABDOMINAL PAIN UPPER [None]
  - LOSS OF CONSCIOUSNESS [None]
  - CHOLELITHIASIS [None]
  - MOBILITY DECREASED [None]
  - LIVER DISORDER [None]
  - MACULAR OEDEMA [None]
